FAERS Safety Report 4997793-1 (Version None)
Quarter: 2006Q2

REPORT INFORMATION
  Report Type: 
  Country: None (occurrence: None)
  Receive Date: 20060510
  Receipt Date: 20060502
  Transmission Date: 20061013
  Serious: Yes (Other)
  Sender: FDA-Public Use
  Company Number: IT-JNJFOC-20060500393

PATIENT
  Age: 45 Year
  Sex: Female

DRUGS (1)
  1. PRIXAR [Suspect]
     Indication: SINUSITIS
     Route: 048
     Dates: start: 20060330, end: 20060401

REACTIONS (4)
  - AGEUSIA [None]
  - AGITATION [None]
  - INSOMNIA [None]
  - RESTLESSNESS [None]
